FAERS Safety Report 18888224 (Version 3)
Quarter: 2021Q4

REPORT INFORMATION
  Report Type: Report from Study
  Country: JP (occurrence: JP)
  Receive Date: 20210213
  Receipt Date: 20211227
  Transmission Date: 20220304
  Serious: Yes (Life-Threatening, Hospitalization, Other)
  Sender: FDA-Public Use
  Company Number: JP-MSD-M2021-03202

PATIENT
  Age: 28 Year
  Sex: Male

DRUGS (10)
  1. RALTEGRAVIR POTASSIUM [Suspect]
     Active Substance: RALTEGRAVIR POTASSIUM
     Indication: HIV infection
     Dosage: 1200 MILLIGRAM, QD
     Route: 048
     Dates: start: 2018
  2. RALTEGRAVIR POTASSIUM [Suspect]
     Active Substance: RALTEGRAVIR POTASSIUM
     Dosage: 1200 MILLIGRAM, QD
     Route: 048
     Dates: start: 20190621, end: 20191219
  3. RALTEGRAVIR POTASSIUM [Suspect]
     Active Substance: RALTEGRAVIR POTASSIUM
     Dosage: 30 DOSAGE FORM, QD
     Route: 048
     Dates: start: 20191220, end: 20191220
  4. RALTEGRAVIR POTASSIUM [Suspect]
     Active Substance: RALTEGRAVIR POTASSIUM
     Dosage: 1200 MILLIGRAM, QD
     Route: 048
     Dates: start: 20191221, end: 202004
  5. RALTEGRAVIR POTASSIUM [Suspect]
     Active Substance: RALTEGRAVIR POTASSIUM
     Dosage: 1200 MILLIGRAM, QD
     Route: 048
     Dates: start: 2020, end: 20200702
  6. ETIZOLAM [Concomitant]
     Active Substance: ETIZOLAM
     Dosage: 20 DOSAGE FORM
     Route: 048
     Dates: start: 20191220, end: 20191220
  7. ETIZOLAM [Concomitant]
     Active Substance: ETIZOLAM
     Dosage: 20 DOSAGE FORM, ONCE
     Route: 048
     Dates: start: 20191220, end: 20191220
  8. DESCOVY [Concomitant]
     Active Substance: EMTRICITABINE\TENOFOVIR ALAFENAMIDE FUMARATE
     Indication: HIV infection
     Dosage: 1 DOSAGE FORM, QD
     Route: 048
     Dates: start: 20190621, end: 20191219
  9. DESCOVY [Concomitant]
     Active Substance: EMTRICITABINE\TENOFOVIR ALAFENAMIDE FUMARATE
     Dosage: 40-50 DOSAGE FORM, QD
     Route: 048
     Dates: start: 20191220, end: 20191220
  10. ATARAX [Concomitant]
     Active Substance: HYDROXYZINE HYDROCHLORIDE
     Dosage: 9 DOSAGE FORM
     Route: 048
     Dates: start: 20191220, end: 20191220

REACTIONS (3)
  - Suicide attempt [Recovering/Resolving]
  - Depressed level of consciousness [Recovering/Resolving]
  - Intentional overdose [Recovering/Resolving]

NARRATIVE: CASE EVENT DATE: 20191220
